FAERS Safety Report 25525200 (Version 1)
Quarter: 2025Q3

REPORT INFORMATION
  Report Type: Spontaneous
  Country: US (occurrence: None)
  Receive Date: 20250706
  Receipt Date: 20250706
  Transmission Date: 20251021
  Serious: Yes (Life-Threatening, Other)
  Sender: FDA-CTU
  Company Number: None

PATIENT
  Age: 34 Year
  Sex: Female
  Weight: 87.75 kg

DRUGS (5)
  1. DIPHENHYDRAMINE [Suspect]
     Active Substance: DIPHENHYDRAMINE
     Indication: Multiple allergies
     Route: 048
     Dates: start: 20250311, end: 20250705
  2. SUMATRIPTAN [Concomitant]
     Active Substance: SUMATRIPTAN
  3. FLUOXETINE [Concomitant]
     Active Substance: FLUOXETINE HYDROCHLORIDE
  4. TRAZODONE [Concomitant]
     Active Substance: TRAZODONE HYDROCHLORIDE
  5. VITAMIN B12 [Concomitant]
     Active Substance: CYANOCOBALAMIN

REACTIONS (7)
  - Heart rate increased [None]
  - Feeling hot [None]
  - Hallucination [None]
  - Presyncope [None]
  - Pallor [None]
  - Chills [None]
  - Hypoaesthesia [None]

NARRATIVE: CASE EVENT DATE: 20250705
